FAERS Safety Report 22303776 (Version 1)
Quarter: 2023Q2

REPORT INFORMATION
  Report Type: Spontaneous
  Country: JP (occurrence: JP)
  Receive Date: 20230510
  Receipt Date: 20230510
  Transmission Date: 20230722
  Serious: Yes (Other)
  Sender: FDA-Public Use
  Company Number: JP-SUN PHARMACEUTICAL INDUSTRIES LTD-2023RR-387814

PATIENT
  Age: 75 Year
  Sex: Male

DRUGS (3)
  1. OXALIPLATIN [Suspect]
     Active Substance: OXALIPLATIN
     Indication: Colon cancer metastatic
     Dosage: 100 MG/M^2, SOX REGIMEN
     Route: 065
  2. METHYLPREDNISOLONE [Suspect]
     Active Substance: METHYLPREDNISOLONE
     Indication: Colon cancer metastatic
     Dosage: 500 MILLIGRAM, DAILY
     Route: 065
  3. Tegafur/gimerasil/oterasil [Concomitant]
     Indication: Colon cancer metastatic
     Dosage: 80 MILLIGRAM, DAILY, S-1
     Route: 065

REACTIONS (2)
  - Renal tubular necrosis [Not Recovered/Not Resolved]
  - Drug ineffective [Unknown]
